FAERS Safety Report 10674745 (Version 3)
Quarter: 2015Q1

REPORT INFORMATION
  Report Type: Report from Study
  Country: BR (occurrence: BR)
  Receive Date: 20141224
  Receipt Date: 20150122
  Transmission Date: 20150720
  Serious: Yes (Other)
  Sender: FDA-Public Use
  Company Number: PHHY2014BR166876

PATIENT
  Age: 70 Year
  Sex: Male
  Weight: 57 kg

DRUGS (6)
  1. COLINA [Suspect]
     Active Substance: MONTMORILLONITE
     Indication: COGNITIVE DISORDER
  2. COMBODART [Concomitant]
     Active Substance: DUTASTERIDE\TAMSULOSIN
     Indication: PROSTATIC DISORDER
     Dosage: 1 DF, QHS (ONE TABLET, AT NIGHT)
     Route: 065
  3. EXELON PATCH [Suspect]
     Active Substance: RIVASTIGMINE
     Indication: COGNITIVE DISORDER
     Dosage: 13.3 MG (PATCH 15CM2), QD
     Route: 062
  4. EXELON PATCH [Suspect]
     Active Substance: RIVASTIGMINE
     Indication: DISTURBANCE IN ATTENTION
     Dosage: 13.3 MG (PATCH 15CM2), QD
     Route: 062
     Dates: start: 201410, end: 20141031
  5. COLINA [Suspect]
     Active Substance: MONTMORILLONITE
     Indication: DISTURBANCE IN ATTENTION
     Dosage: UNK
     Route: 048
     Dates: start: 201410
  6. EXELON PATCH [Suspect]
     Active Substance: RIVASTIGMINE
     Dosage: 13.3 MG (PATCH 15CM2), QD
     Route: 062

REACTIONS (16)
  - Cerebral atrophy [Unknown]
  - Abasia [Unknown]
  - Somnolence [Unknown]
  - Decreased appetite [Unknown]
  - Feeling abnormal [Unknown]
  - Malaise [Unknown]
  - Hallucination [Unknown]
  - Asthenia [Unknown]
  - Diarrhoea [Unknown]
  - Nausea [Recovered/Resolved]
  - Apathy [Unknown]
  - Delirium [Recovered/Resolved]
  - Abdominal discomfort [Unknown]
  - Decreased interest [Unknown]
  - Dizziness [Unknown]
  - Product use issue [Unknown]

NARRATIVE: CASE EVENT DATE: 20141029
